FAERS Safety Report 18238074 (Version 1)
Quarter: 2020Q3

REPORT INFORMATION
  Report Type: Spontaneous
  Country: US (occurrence: US)
  Receive Date: 20200907
  Receipt Date: 20200907
  Transmission Date: 20201103
  Serious: No
  Sender: FDA-Public Use
  Company Number: US-BAXTER-2020BAX018152

PATIENT
  Age: 67 Year
  Weight: 112.14 kg

DRUGS (1)
  1. DIANEAL LOW CALCIUM PERITONEAL DIALYSIS SOLUTION WITH DEXTROSE [Suspect]
     Active Substance: CALCIUM CHLORIDE\DEXTROSE\MAGNESIUM CHLORIDE\SODIUM CHLORIDE\SODIUM LACTATE
     Indication: PERITONEAL DIALYSIS
     Dosage: ONE OR 2 BAGS
     Route: 033
     Dates: start: 20200610

REACTIONS (2)
  - Bloody peritoneal effluent [Unknown]
  - Product contamination [Unknown]

NARRATIVE: CASE EVENT DATE: 20200827
